FAERS Safety Report 9235732 (Version 1)
Quarter: 2013Q2

REPORT INFORMATION
  Report Type: Spontaneous
  Country: US (occurrence: None)
  Receive Date: 20130416
  Receipt Date: 20130416
  Transmission Date: 20140414
  Serious: Yes (Other)
  Sender: FDA-Public Use
  Company Number: None

PATIENT
  Age: 53 Year
  Sex: Female

DRUGS (1)
  1. AVONEX 30 MCG BIOGEN [Suspect]
     Indication: MULTIPLE SCLEROSIS
     Route: 030
     Dates: start: 20130320, end: 20130321

REACTIONS (5)
  - Headache [None]
  - Dizziness [None]
  - Swollen tongue [None]
  - Hypoaesthesia [None]
  - White blood cell count decreased [None]
